FAERS Safety Report 14347642 (Version 1)
Quarter: 2018Q1

REPORT INFORMATION
  Report Type: Spontaneous
  Country: US (occurrence: US)
  Receive Date: 20180103
  Receipt Date: 20180103
  Transmission Date: 20180509
  Serious: No
  Sender: FDA-Public Use
  Company Number: US-PFIZER INC-2017555230

PATIENT
  Sex: Female

DRUGS (2)
  1. DIFLUCAN [Suspect]
     Active Substance: FLUCONAZOLE
     Indication: FUNGAL INFECTION
     Dosage: UNK
  2. KETOCONAZOLE. [Suspect]
     Active Substance: KETOCONAZOLE

REACTIONS (4)
  - Abdominal distension [Unknown]
  - Flatulence [Unknown]
  - Abdominal pain [Unknown]
  - Malaise [Unknown]
